FAERS Safety Report 8130929 (Version 5)
Quarter: 2012Q4

REPORT INFORMATION
  Report Type: 
  Country: US (occurrence: US)
  Receive Date: 20110912
  Receipt Date: 20121024
  Transmission Date: 20130627
  Serious: Yes (Hospitalization)
  Sender: FDA-Public Use
  Company Number: US-BAYER-2011-082057

PATIENT
  Age: 35 Year
  Sex: Female
  Weight: 97.96 kg

DRUGS (6)
  1. YASMIN [Suspect]
     Indication: CONTRACEPTION
     Dosage: UNK
     Dates: start: 20041123, end: 20060321
  2. YASMIN [Suspect]
     Indication: CONTRACEPTION
     Dosage: UNK
     Dates: start: 20050308
  3. YAZ [Suspect]
     Indication: CONTRACEPTION
     Dosage: UNK
     Dates: start: 20041123, end: 20060321
  4. ATENOLOL [Concomitant]
     Dosage: 25 mg, QD
     Route: 048
  5. IBUPROFEN [Concomitant]
  6. VERAPAMIL [Concomitant]
     Indication: BLOOD PRESSURE HIGH
     Dosage: UNK
     Dates: start: 2006

REACTIONS (8)
  - Cerebrovascular accident [None]
  - Hemiparesis [None]
  - Muscular weakness [None]
  - Muscular weakness [None]
  - Muscular weakness [None]
  - Gait disturbance [None]
  - Injury [None]
  - Pain [None]
